FAERS Safety Report 5238690-6 (Version None)
Quarter: 2007Q1

REPORT INFORMATION
  Report Type: 
  Country: None (occurrence: None)
  Receive Date: 20070215
  Receipt Date: 20070209
  Transmission Date: 20070707
  Serious: Yes (Other)
  Sender: FDA-Public Use
  Company Number: MX-SHR-MX-2007-003260

PATIENT
  Sex: Female

DRUGS (2)
  1. ANGELIQ [Suspect]
     Indication: HORMONE REPLACEMENT THERAPY
     Dosage: 1 TAB(S), UNK
     Route: 048
     Dates: start: 20060930
  2. CALTRATE 600+B [Concomitant]
     Dosage: UNK

REACTIONS (3)
  - DEPRESSION [None]
  - DYSAESTHESIA [None]
  - HEADACHE [None]
